FAERS Safety Report 6595316-7 (Version None)
Quarter: 2010Q1

REPORT INFORMATION
  Report Type: 
  Country: None (occurrence: None)
  Receive Date: 20100219
  Receipt Date: 20100219
  Transmission Date: 20100710
  Serious: Yes (Hospitalization)
  Sender: FDA-Public Use
  Company Number: None

PATIENT
  Age: 76 Year
  Sex: Male

DRUGS (9)
  1. ENALAPRIL MALEATE [Suspect]
     Indication: HYPERTENSION
     Dosage: 5 MG DAILY X 1-DAY/GL2H PO
     Route: 048
     Dates: start: 20090731, end: 20090802
  2. HYDRALAZINE [Concomitant]
  3. CALCIUM ACETATE [Concomitant]
  4. IPRATROPIUM [Concomitant]
  5. ALBUTEROL [Concomitant]
  6. MONTELUKAST [Concomitant]
  7. GLIPIZIDE [Concomitant]
  8. ZITHROMAX [Concomitant]
  9. GUAIFENESIN [Concomitant]

REACTIONS (3)
  - ANGIOEDEMA [None]
  - OROPHARYNGEAL PAIN [None]
  - PRURITUS GENERALISED [None]
